FAERS Safety Report 7776116-9 (Version None)
Quarter: 2011Q3

REPORT INFORMATION
  Report Type: 
  Country: None (occurrence: None)
  Receive Date: 20110925
  Receipt Date: 20090224
  Transmission Date: 20111222
  Serious: Yes (Death)
  Sender: FDA-Public Use
  Company Number: PHHY2009TW60943

PATIENT
  Sex: Female

DRUGS (1)
  1. GLEEVEC [Suspect]
     Indication: CHRONIC MYELOID LEUKAEMIA

REACTIONS (5)
  - MYALGIA [None]
  - CEREBRAL HAEMORRHAGE [None]
  - PYREXIA [None]
  - BLAST CELLS PRESENT [None]
  - DEPRESSION [None]
